FAERS Safety Report 13329589 (Version 1)
Quarter: 2017Q1

REPORT INFORMATION
  Report Type: Spontaneous
  Country: US (occurrence: US)
  Receive Date: 20170313
  Receipt Date: 20170313
  Transmission Date: 20170428
  Serious: No
  Sender: FDA-Public Use
  Company Number: US-GLAXOSMITHKLINE-US2017034252

PATIENT
  Age: 65 Year
  Sex: Female

DRUGS (1)
  1. FLOVENT [Suspect]
     Active Substance: FLUTICASONE PROPIONATE
     Indication: ASTHMA
     Dosage: 2 PUFF(S), Z
     Dates: start: 2007

REACTIONS (3)
  - Parkinsonism [Unknown]
  - Expired product administered [Unknown]
  - Asthma [Unknown]

NARRATIVE: CASE EVENT DATE: 201610
